FAERS Safety Report 25508318 (Version 1)
Quarter: 2025Q3

REPORT INFORMATION
  Report Type: Report from Study
  Country: CA (occurrence: CA)
  Receive Date: 20250703
  Receipt Date: 20250703
  Transmission Date: 20251020
  Serious: Yes (Hospitalization)
  Sender: ABBVIE
  Company Number: CA-ABBVIE-6351944

PATIENT
  Age: 60 Year
  Sex: Female

DRUGS (1)
  1. HUMIRA [Suspect]
     Active Substance: ADALIMUMAB
     Indication: Crohn^s disease
     Route: 058

REACTIONS (6)
  - Small intestinal obstruction [Unknown]
  - Flatulence [Recovering/Resolving]
  - Sinus bradycardia [Unknown]
  - Hypertension [Unknown]
  - Asthma [Unknown]
  - Psoriasis [Unknown]

NARRATIVE: CASE EVENT DATE: 20250601
